FAERS Safety Report 8118690-9 (Version None)
Quarter: 2012Q1

REPORT INFORMATION
  Report Type: 
  Country: None (occurrence: None)
  Receive Date: 20120202
  Receipt Date: 20120120
  Transmission Date: 20120608
  Serious: Yes (Life-Threatening, Hospitalization)
  Sender: FDA-Public Use
  Company Number: DSJ-2011-25682

PATIENT
  Age: 78 Year
  Sex: Male
  Weight: 56 kg

DRUGS (3)
  1. OLMESARTAN MEDOXOMIL [Suspect]
     Indication: HYPERTENSION
     Dosage: 20 MG (20 MG, 1 IN 1 D), PER ORAL
     Route: 048
     Dates: start: 20101209, end: 20111129
  2. DETANTOL R (BUNAZOSIN HYDROCHLORIDE) (TABLET) (BUNAZOSIN HYDROCHLORIDE [Concomitant]
  3. AMLODIPINE BESYLATE [Concomitant]

REACTIONS (8)
  - ARTHRALGIA [None]
  - MUSCULAR WEAKNESS [None]
  - HYPERKALAEMIA [None]
  - ABDOMINAL PAIN [None]
  - HAEMOLYSIS [None]
  - BACK PAIN [None]
  - ABASIA [None]
  - PAIN IN EXTREMITY [None]
